FAERS Safety Report 13185788 (Version 2)
Quarter: 2018Q1

REPORT INFORMATION
  Report Type: Spontaneous
  Country: US (occurrence: US)
  Receive Date: 20170203
  Receipt Date: 20180118
  Transmission Date: 20180508
  Serious: Yes (Death, Hospitalization)
  Sender: FDA-Public Use
  Company Number: US-ACTELION-A-US2017-149433

PATIENT
  Age: 79 Year
  Sex: Male

DRUGS (1)
  1. VALCHLOR [Suspect]
     Active Substance: MECHLORETHAMINE
     Indication: MYCOSIS FUNGOIDES
     Dosage: UNK, QD
     Route: 061
     Dates: start: 20161116, end: 20170125

REACTIONS (20)
  - Scrotal oedema [Recovering/Resolving]
  - Skin disorder [Unknown]
  - Encephalopathy [Recovered/Resolved]
  - Atypical mycobacterium test positive [Fatal]
  - Hypothermia [Recovering/Resolving]
  - Hypoalbuminaemia [Recovering/Resolving]
  - Bacterial sepsis [Fatal]
  - Blood culture positive [Fatal]
  - Failure to thrive [Unknown]
  - Atrial tachycardia [Unknown]
  - Confusional state [Recovered/Resolved]
  - Acute kidney injury [Recovered/Resolved]
  - Hypotension [Unknown]
  - Normochromic anaemia [Unknown]
  - Dysphagia [Unknown]
  - Rhabdomyolysis [Recovered/Resolved]
  - Respiratory failure [Unknown]
  - Asthenia [Unknown]
  - General physical health deterioration [Not Recovered/Not Resolved]
  - Hypernatraemia [Recovering/Resolving]

NARRATIVE: CASE EVENT DATE: 20170121
